FAERS Safety Report 26135504 (Version 1)
Quarter: 2025Q4

REPORT INFORMATION
  Report Type: Spontaneous
  Country: US (occurrence: None)
  Receive Date: 20251208
  Receipt Date: 20251208
  Transmission Date: 20260117
  Serious: Yes (Other)
  Sender: FDA-CTU
  Company Number: None

PATIENT
  Age: 39 Year
  Sex: Female

DRUGS (3)
  1. CYANOCOBALAMIN\NALTREXONE\TOPIRAMATE [Suspect]
     Active Substance: CYANOCOBALAMIN\NALTREXONE\TOPIRAMATE
     Indication: Weight decreased
     Dosage: DAILY ORAL
     Route: 048
  2. BUPROPION [Suspect]
     Active Substance: BUPROPION
  3. ONDANSETRON [Suspect]
     Active Substance: ONDANSETRON

REACTIONS (4)
  - Pupillary light reflex tests [None]
  - Visual field defect [None]
  - Retinal disorder [None]
  - Therapy cessation [None]

NARRATIVE: CASE EVENT DATE: 20251120
